FAERS Safety Report 8054516 (Version 2)
Quarter: 2013Q2

REPORT INFORMATION
  Report Type: Spontaneous
  Country: US (occurrence: US)
  Receive Date: 20110726
  Receipt Date: 20130520
  Transmission Date: 20140414
  Serious: Yes (Other)
  Sender: FDA-Public Use
  Company Number: US-BAYER-2011-062980

PATIENT
  Age: 19 Year
  Sex: Female

DRUGS (11)
  1. YAZ [Suspect]
     Dosage: UNK
     Dates: start: 20080207, end: 20091123
  2. YASMIN [Suspect]
     Dosage: UNK
     Dates: start: 20080207, end: 20091123
  3. OCELLA [Suspect]
     Dosage: UNK
     Dates: start: 20080207, end: 20091123
  4. CYCLOBENZAPRINE [Concomitant]
     Dosage: 10 MG, UNK
     Dates: start: 20081007
  5. PROMETHAZINE [Concomitant]
     Dosage: 25 MG, UNK
     Dates: start: 20081103, end: 20081105
  6. ACETAMINOPHEN W/OXYCODONE [Concomitant]
     Dosage: 5-325
     Dates: start: 20081105
  7. ACETAMINOPHEN W/HYDROCODONE [Concomitant]
     Dosage: 5-50
     Dates: start: 20081105, end: 20081118
  8. PROCHLORPERAZINE [Concomitant]
     Dosage: 25 MG, UNK
     Dates: start: 20081107
  9. LORAZEPAM [Concomitant]
     Dosage: 0.5 MG, UNK
     Dates: start: 20081110
  10. POTASSIUM CHLORIDE [Concomitant]
     Dosage: 20
     Dates: start: 20081110
  11. ONDANSETRON [Concomitant]
     Dosage: 4 MG, UNK
     Dates: start: 20081110

REACTIONS (9)
  - Cerebral venous thrombosis [Recovered/Resolved]
  - Embolism [Unknown]
  - Pain [Unknown]
  - Emotional distress [Unknown]
  - General physical health deterioration [Unknown]
  - Anxiety [Unknown]
  - General physical health deterioration [Unknown]
  - Emotional distress [Unknown]
  - Injury [Unknown]
